FAERS Safety Report 5062061-9 (Version None)
Quarter: 2006Q3

REPORT INFORMATION
  Report Type: 
  Country: None (occurrence: None)
  Receive Date: 20060720
  Receipt Date: 20060720
  Transmission Date: 20061208
  Serious: Yes (Hospitalization)
  Sender: FDA-Public Use
  Company Number: None

PATIENT
  Age: 64 Year
  Sex: Male
  Weight: 73.9363 kg

DRUGS (5)
  1. ASPIRIN [Suspect]
     Indication: PROPHYLAXIS
     Dosage: 81 MG DAILY
     Dates: start: 20060421, end: 20060521
  2. AZACTIDINE [Suspect]
     Indication: MYELOPROLIFERATIVE DISORDER
     Dosage: 150 MG SUBCUT DAILY X 7 DAYS EVERY 4 WEEKS
     Route: 058
     Dates: start: 20060512
  3. ETODOLAC [Suspect]
     Indication: PAIN
     Dosage: 400 MG BID
     Dates: start: 20010101, end: 20060521
  4. VITAMIN E [Suspect]
     Dosage: 400 UNITS
  5. . [Concomitant]

REACTIONS (5)
  - ANAEMIA [None]
  - HAEMATURIA [None]
  - HAEMORRHAGE [None]
  - LEUKOPENIA [None]
  - THROMBOCYTOPENIA [None]
